FAERS Safety Report 25889071 (Version 1)
Quarter: 2025Q4

REPORT INFORMATION
  Report Type: Report from Study
  Country: CN (occurrence: CN)
  Receive Date: 20251007
  Receipt Date: 20251007
  Transmission Date: 20260117
  Serious: Yes (Disabling, Other)
  Sender: CHEPLAPHARM
  Company Number: CN-CHEPLA-2025011543

PATIENT
  Sex: Female

DRUGS (2)
  1. GANCICLOVIR [Suspect]
     Active Substance: GANCICLOVIR
     Indication: Cytomegalovirus chorioretinitis
     Dosage: DAILY DOSE: 10 MILLIGRAM
     Route: 031
  2. GANCICLOVIR [Suspect]
     Active Substance: GANCICLOVIR
     Indication: Cytomegalovirus chorioretinitis
     Dosage: 2.5  MG/0.05 ML ONE ?OR TWO INJECTIONS EVERY WEEK
     Route: 031

REACTIONS (2)
  - Blindness [Recovered/Resolved]
  - Off label use [Recovered/Resolved]
